FAERS Safety Report 9324319 (Version 1)
Quarter: 2013Q2

REPORT INFORMATION
  Report Type: Report from Study
  Country: FR (occurrence: FR)
  Receive Date: 20130603
  Receipt Date: 20130603
  Transmission Date: 20140414
  Serious: Yes (Other)
  Sender: FDA-Public Use
  Company Number: FR-PFIZER INC-2013163168

PATIENT
  Age: 82 Year
  Sex: Female

DRUGS (3)
  1. MIRTAZAPINE [Suspect]
     Dosage: 15 MG, DAILY
  2. HALOPERIDOL [Interacting]
     Dosage: 0.5 MG, DAILY
  3. RISPERIDONE [Interacting]
     Dosage: 2 MG, DAILY

REACTIONS (3)
  - Drug interaction [Unknown]
  - Hallucination, visual [Unknown]
  - Agitation [Unknown]
